FAERS Safety Report 10465886 (Version 2)
Quarter: 2014Q4

REPORT INFORMATION
  Report Type: Report from Study
  Country: FR (occurrence: FR)
  Receive Date: 20140922
  Receipt Date: 20141114
  Transmission Date: 20150528
  Serious: Yes (Other)
  Sender: FDA-Public Use
  Company Number: FR-AMGEN-FRACT2014071199

PATIENT
  Age: 65 Year
  Sex: Female
  Weight: 36 kg

DRUGS (5)
  1. PANITUMUMAB [Suspect]
     Active Substance: PANITUMUMAB
     Indication: OESOPHAGEAL ADENOCARCINOMA METASTATIC
     Dosage: 230 MG, UNK
     Route: 042
     Dates: start: 20120605
  2. 5 FU [Concomitant]
     Active Substance: FLUOROURACIL
     Indication: OESOPHAGEAL ADENOCARCINOMA METASTATIC
     Dosage: 0 MG, UNK
     Route: 040
     Dates: start: 20120605
  3. OXALIPLATINE [Concomitant]
     Active Substance: OXALIPLATIN
     Indication: OESOPHAGEAL ADENOCARCINOMA METASTATIC
     Dosage: 0 MG, UNK
     Route: 042
     Dates: start: 20120605
  4. FOLINATE CALCIUM [Concomitant]
     Active Substance: LEUCOVORIN CALCIUM
     Indication: OESOPHAGEAL ADENOCARCINOMA METASTATIC
     Dosage: 260 MG, UNK
     Route: 042
     Dates: start: 20120605
  5. 5 FU [Concomitant]
     Active Substance: FLUOROURACIL
     Dosage: 3150 MG, UNK
     Route: 042
     Dates: start: 20120605

REACTIONS (1)
  - Xerosis [Recovered/Resolved]

NARRATIVE: CASE EVENT DATE: 20130430
